FAERS Safety Report 5782539-X (Version None)
Quarter: 2008Q2

REPORT INFORMATION
  Report Type: 
  Country: None (occurrence: None)
  Receive Date: 20080623
  Receipt Date: 20080611
  Transmission Date: 20081010
  Serious: Yes (Hospitalization)
  Sender: FDA-Public Use
  Company Number: ES-PFIZER INC-2008049669

PATIENT
  Age: 53 Year
  Sex: Female

DRUGS (3)
  1. CHANTIX [Suspect]
     Indication: SMOKING CESSATION THERAPY
     Route: 048
     Dates: start: 20080321, end: 20080324
  2. NICOTINE [Interacting]
     Indication: SMOKING CESSATION THERAPY
     Route: 062
     Dates: start: 20080321, end: 20080323
  3. ANTIDEPRESSANTS [Concomitant]

REACTIONS (3)
  - DRUG INTERACTION [None]
  - EXTRAPYRAMIDAL DISORDER [None]
  - SYNCOPE [None]
